FAERS Safety Report 9392268 (Version 4)
Quarter: 2013Q3

REPORT INFORMATION
  Report Type: Spontaneous
  Country: IT (occurrence: IT)
  Receive Date: 20130710
  Receipt Date: 20130817
  Transmission Date: 20140515
  Serious: Yes (Hospitalization, Other)
  Sender: FDA-Public Use
  Company Number: IT-JNJFOC-20130701962

PATIENT
  Age: 40 Year
  Sex: Female
  Weight: 48 kg

DRUGS (2)
  1. ZIRTEC [Suspect]
     Route: 065
  2. ZIRTEC [Suspect]
     Indication: MULTIPLE ALLERGIES
     Route: 065
     Dates: start: 20130623, end: 20130623

REACTIONS (1)
  - Epilepsy [Recovered/Resolved]
